FAERS Safety Report 6269509-2 (Version None)
Quarter: 2009Q3

REPORT INFORMATION
  Report Type: 
  Country: None (occurrence: None)
  Receive Date: 20090715
  Receipt Date: 20090113
  Transmission Date: 20100115
  Serious: No
  Sender: FDA-Public Use
  Company Number: US-TYCO HEALTHCARE/MALLINCKRODT-T200900053

PATIENT
  Sex: Female
  Weight: 115.65 kg

DRUGS (10)
  1. OXYCODONE HCL [Suspect]
     Indication: PAIN
     Dosage: 30 MG (6 TABLETS), BID
     Route: 048
  2. KLONOPIN [Concomitant]
     Indication: RESTLESS LEGS SYNDROME
     Dosage: 1 MG, 1 IN AM, 2 AT NIGHT
     Route: 048
  3. ACTOS [Concomitant]
     Indication: DIABETES MELLITUS
     Dosage: 30 MG, QD
     Route: 048
  4. DALMANE [Concomitant]
     Dosage: 30 MG, AT BEDTIME
     Route: 048
  5. LEXAPRO [Concomitant]
     Dosage: 20 MG, AT BEDTIME
     Route: 048
  6. FOLIC ACID [Concomitant]
     Dosage: 1 MG, QD
     Route: 048
  7. GLUCOTROL [Concomitant]
     Indication: DIABETES MELLITUS
     Dosage: 10 MG, BID
     Route: 048
  8. DIOVAN                             /01319601/ [Concomitant]
     Indication: HYPERTENSION
     Dosage: 80 MG, Q AM
     Route: 048
  9. DESYREL [Concomitant]
     Dosage: 100 MG, 3 AT BEDTIME
     Route: 048
  10. UNSPECIFIED CREAM [Concomitant]
     Indication: FUNGAL INFECTION
     Dosage: UNK
     Route: 061

REACTIONS (5)
  - BLISTER [None]
  - DYSPHEMIA [None]
  - ERYTHEMA [None]
  - FALL [None]
  - SPEECH DISORDER [None]
